FAERS Safety Report 8241496-7 (Version None)
Quarter: 2012Q1

REPORT INFORMATION
  Report Type: 
  Country: None (occurrence: None)
  Receive Date: 20120328
  Receipt Date: 20120322
  Transmission Date: 20120608
  Serious: Yes (Hospitalization)
  Sender: FDA-Public Use
  Company Number: BE-AMGEN-BELNI2012017052

PATIENT
  Age: 70 Year
  Sex: Male

DRUGS (8)
  1. CETIRIZINE [Concomitant]
     Dosage: UNK UNK, ONE TIME DOSE
     Route: 048
     Dates: start: 20120307
  2. TAMSULOSIN HCL [Concomitant]
     Dosage: UNK
     Route: 048
     Dates: start: 20100101
  3. METFORMIN HCL [Concomitant]
     Dosage: UNK
     Route: 048
  4. ENOXAPARIN SODIUM [Suspect]
     Dosage: UNK
     Route: 058
     Dates: start: 20111228
  5. DOXYCYCLINE [Concomitant]
     Dosage: UNK
     Route: 048
     Dates: start: 20120307
  6. ROZEX [Concomitant]
     Dosage: UNK
     Dates: start: 20120307
  7. GLUCOPHAGE [Concomitant]
     Indication: DIABETES MELLITUS
  8. PANITUMUMAB [Suspect]
     Indication: COLORECTAL CANCER
     Dosage: UNK
     Route: 042
     Dates: start: 20120221, end: 20120307

REACTIONS (1)
  - HAEMATURIA [None]
